FAERS Safety Report 19275846 (Version 2)
Quarter: 2021Q2

REPORT INFORMATION
  Report Type: Spontaneous
  Country: US (occurrence: US)
  Receive Date: 20210519
  Receipt Date: 20210519
  Transmission Date: 20210717
  Serious: Yes (Life-Threatening, Hospitalization, Other)
  Sender: FDA-Public Use
  Company Number: US-PFIZER INC-2021504681

PATIENT
  Age: 70 Year
  Sex: Male

DRUGS (4)
  1. ATORVASTATIN CALCIUM. [Suspect]
     Active Substance: ATORVASTATIN CALCIUM
     Dosage: 80 MG, DAILY (6 MONTHS)
  2. METOPROLOL TARTRATE. [Concomitant]
     Active Substance: METOPROLOL TARTRATE
     Dosage: 25 MG, 2X/DAY
  3. GLIPIZIDE. [Concomitant]
     Active Substance: GLIPIZIDE
     Dosage: 5 MG, DAILY
  4. ASPIRIN [ACETYLSALICYLIC ACID] [Concomitant]
     Active Substance: ASPIRIN
     Dosage: 81 MG

REACTIONS (6)
  - Acute kidney injury [Recovering/Resolving]
  - Autoimmune myocarditis [Recovering/Resolving]
  - Transaminases increased [Recovering/Resolving]
  - Rhabdomyolysis [Recovering/Resolving]
  - Cardiac failure acute [Recovering/Resolving]
  - Necrotising myositis [Recovering/Resolving]
